FAERS Safety Report 23880383 (Version 1)
Quarter: 2024Q2

REPORT INFORMATION
  Report Type: Spontaneous
  Country: US (occurrence: None)
  Receive Date: 20240521
  Receipt Date: 20240521
  Transmission Date: 20240716
  Serious: Yes (Hospitalization)
  Sender: FDA-Public Use
  Company Number: None

PATIENT
  Age: 71 Year
  Sex: Male
  Weight: 60.8 kg

DRUGS (1)
  1. CISPLATIN [Suspect]
     Active Substance: CISPLATIN
     Dates: end: 20240418

REACTIONS (15)
  - Hyponatraemia [None]
  - Laboratory test abnormal [None]
  - Chronic kidney disease [None]
  - Lymphocyte count decreased [None]
  - Hypoxia [None]
  - Pulmonary oedema [None]
  - Malnutrition [None]
  - Fluid intake reduced [None]
  - Urinary retention [None]
  - Dizziness [None]
  - Dyspnoea [None]
  - Wheezing [None]
  - Chronic obstructive pulmonary disease [None]
  - Therapy interrupted [None]
  - Acute kidney injury [None]

NARRATIVE: CASE EVENT DATE: 20240425
